FAERS Safety Report 4615507-1 (Version None)
Quarter: 2005Q1

REPORT INFORMATION
  Report Type: 
  Country: None (occurrence: None)
  Receive Date: 20050317
  Receipt Date: 20050307
  Transmission Date: 20050727
  Serious: Yes (Other)
  Sender: FDA-Public Use
  Company Number: 2005UW03764

PATIENT
  Sex: 0

DRUGS (1)
  1. SEROQUEL [Suspect]

REACTIONS (1)
  - WHITE BLOOD CELL COUNT DECREASED [None]
